FAERS Safety Report 7291385-X (Version None)
Quarter: 2011Q1

REPORT INFORMATION
  Report Type: 
  Country: None (occurrence: None)
  Receive Date: 20110214
  Receipt Date: 20110202
  Transmission Date: 20110831
  Serious: Yes (Other)
  Sender: FDA-Public Use
  Company Number: B0698037A

PATIENT
  Age: 59 Year
  Sex: Female

DRUGS (1)
  1. ZELITREX [Suspect]
     Indication: HERPES OPHTHALMIC
     Route: 048

REACTIONS (2)
  - MACROCYTOSIS [None]
  - OFF LABEL USE [None]
